FAERS Safety Report 8086167-5 (Version None)
Quarter: 2012Q1

REPORT INFORMATION
  Report Type: 
  Country: None (occurrence: None)
  Receive Date: 20120128
  Receipt Date: 20110426
  Transmission Date: 20120608
  Serious: No
  Sender: FDA-Public Use
  Company Number: US-ABBOTT-11P-163-0721751-00

PATIENT

DRUGS (1)
  1. HUMIRA [Suspect]
     Indication: ANKYLOSING SPONDYLITIS
     Dates: start: 20110414

REACTIONS (5)
  - FEELING ABNORMAL [None]
  - MALAISE [None]
  - FATIGUE [None]
  - CHEST DISCOMFORT [None]
  - NASAL CONGESTION [None]
